FAERS Safety Report 13579189 (Version 1)
Quarter: 2017Q2

REPORT INFORMATION
  Report Type: Spontaneous
  Country: US (occurrence: US)
  Receive Date: 20170525
  Receipt Date: 20170525
  Transmission Date: 20170830
  Serious: Yes (Other)
  Sender: FDA-Public Use
  Company Number: None

PATIENT
  Sex: Female

DRUGS (2)
  1. JOHNSONS BABY POWDER [Suspect]
     Active Substance: TALC
     Indication: THERAPEUTIC SKIN CARE TOPICAL
     Route: 061
     Dates: start: 1972, end: 2016
  2. SHOWER TO SHOWER TALCUM POWDER [Suspect]
     Active Substance: TALC
     Indication: THERAPEUTIC SKIN CARE TOPICAL
     Route: 061
     Dates: start: 1972, end: 2016

REACTIONS (1)
  - Ovarian cancer [None]

NARRATIVE: CASE EVENT DATE: 201401
